FAERS Safety Report 8542161-9 (Version None)
Quarter: 2012Q3

REPORT INFORMATION
  Report Type: 
  Country: None (occurrence: None)
  Receive Date: 20120726
  Receipt Date: 20111012
  Transmission Date: 20120928
  Serious: No
  Sender: FDA-Public Use
  Company Number: US-ASTRAZENECA-2011SE61319

PATIENT
  Age: 65 Year
  Sex: Female
  Weight: 54.4 kg

DRUGS (6)
  1. SEROQUEL [Suspect]
     Indication: AFFECTIVE DISORDER
     Route: 048
     Dates: start: 20111005, end: 20111006
  2. XANAX [Concomitant]
  3. FIORINAL [Concomitant]
     Indication: MIGRAINE
     Dosage: PRN
  4. PRISTIQ [Concomitant]
     Indication: AFFECTIVE DISORDER
     Dates: start: 20110901
  5. MOBIC [Concomitant]
     Indication: FIBROMYALGIA
  6. SYNTHROID [Concomitant]
     Indication: THYROID DISORDER

REACTIONS (10)
  - FEELING DRUNK [None]
  - MOBILITY DECREASED [None]
  - OFF LABEL USE [None]
  - SELF ESTEEM DECREASED [None]
  - PALPITATIONS [None]
  - TREMOR [None]
  - MALAISE [None]
  - GAIT DISTURBANCE [None]
  - TINNITUS [None]
  - VOMITING [None]
